FAERS Safety Report 24458544 (Version 6)
Quarter: 2025Q1

REPORT INFORMATION
  Report Type: Report from Study
  Country: CO (occurrence: CO)
  Receive Date: 20241018
  Receipt Date: 20250121
  Transmission Date: 20250409
  Serious: Yes (Disabling, Other)
  Sender: ROCHE
  Company Number: CO-002147023-NVSC2024CO175662

PATIENT
  Age: 78 Year
  Sex: Male
  Weight: 84 kg

DRUGS (6)
  1. XOLAIR [Suspect]
     Active Substance: OMALIZUMAB
     Indication: Chronic spontaneous urticaria
     Dosage: 2 / 300 MG, QMO
     Route: 050
     Dates: start: 20240404
  2. XOLAIR [Suspect]
     Active Substance: OMALIZUMAB
     Dosage: 1/ 150 MG, QMO
     Route: 050
     Dates: start: 20240909
  3. XOLAIR [Suspect]
     Active Substance: OMALIZUMAB
     Route: 058
  4. XOLAIR [Suspect]
     Active Substance: OMALIZUMAB
     Route: 058
  5. XOLAIR [Suspect]
     Active Substance: OMALIZUMAB
     Route: 065
     Dates: end: 20241109
  6. XOLAIR [Suspect]
     Active Substance: OMALIZUMAB
     Route: 050

REACTIONS (21)
  - Urticaria [Recovered/Resolved]
  - Lip swelling [Recovered/Resolved]
  - Pyrexia [Not Recovered/Not Resolved]
  - Discouragement [Not Recovered/Not Resolved]
  - Erythema [Not Recovered/Not Resolved]
  - Malaise [Unknown]
  - Mass [Unknown]
  - Hypersensitivity [Unknown]
  - Peripheral swelling [Unknown]
  - Lip dry [Unknown]
  - Incorrect dose administered [Unknown]
  - Feeling of despair [Unknown]
  - Illness [Not Recovered/Not Resolved]
  - Drug ineffective [Unknown]
  - Somnolence [Not Recovered/Not Resolved]
  - Swelling face [Recovered/Resolved]
  - Eye swelling [Recovered/Resolved]
  - Foot deformity [Unknown]
  - Swelling [Not Recovered/Not Resolved]
  - General physical health deterioration [Not Recovered/Not Resolved]
  - Product supply issue [Unknown]

NARRATIVE: CASE EVENT DATE: 20241010
